FAERS Safety Report 12387902 (Version 2)
Quarter: 2016Q4

REPORT INFORMATION
  Report Type: Report from Study
  Country: JP (occurrence: JP)
  Receive Date: 20160520
  Receipt Date: 20161102
  Transmission Date: 20170207
  Serious: Yes (Other)
  Sender: FDA-Public Use
  Company Number: JP-BEH-2016062933

PATIENT
  Age: 26 Year
  Sex: Male
  Weight: 76 kg

DRUGS (4)
  1. CLARITH [Concomitant]
     Active Substance: CLARITHROMYCIN
     Dosage: CONTINUED
     Route: 048
     Dates: start: 20140616
  2. MEIACT [Concomitant]
     Active Substance: CEFDITOREN PIVOXIL
     Route: 048
     Dates: start: 20141203, end: 20141220
  3. HIZENTRA [Suspect]
     Active Substance: HUMAN IMMUNOGLOBULIN G
     Indication: BRUTON^S AGAMMAGLOBULINAEMIA
     Dosage: 1 SITE (STOMACH)
     Route: 065
     Dates: start: 20140522, end: 20141113
  4. CRAVIT [Concomitant]
     Active Substance: LEVOFLOXACIN
     Route: 048
     Dates: start: 20150401, end: 20150408

REACTIONS (1)
  - Sinusitis [Recovering/Resolving]

NARRATIVE: CASE EVENT DATE: 20141203
